FAERS Safety Report 6859707-9 (Version None)
Quarter: 2010Q3

REPORT INFORMATION
  Report Type: 
  Country: None (occurrence: None)
  Receive Date: 20100720
  Receipt Date: 20100712
  Transmission Date: 20110219
  Serious: Yes (Hospitalization)
  Sender: FDA-Public Use
  Company Number: US-BIOGENIDEC-2009BI012433

PATIENT
  Age: 53 Year
  Sex: Male
  Weight: 54 kg

DRUGS (1)
  1. AVONEX [Suspect]
     Indication: MULTIPLE SCLEROSIS
     Route: 030
     Dates: start: 20081010, end: 20090301

REACTIONS (3)
  - DRUG INTOLERANCE [None]
  - PAPILLOMA VIRAL INFECTION [None]
  - TONGUE CARCINOMA STAGE III [None]
